FAERS Safety Report 13479788 (Version 2)
Quarter: 2017Q2

REPORT INFORMATION
  Report Type: Report from Study
  Country: CA (occurrence: CA)
  Receive Date: 20170425
  Receipt Date: 20170523
  Transmission Date: 20170830
  Serious: Yes (Other)
  Sender: FDA-Public Use
  Company Number: CA-AMGEN-CANSL2017060222

PATIENT
  Age: 82 Year
  Sex: Female
  Weight: 74.83 kg

DRUGS (7)
  1. ZOLOFT [Concomitant]
     Active Substance: SERTRALINE HYDROCHLORIDE
     Dosage: 200, QD
  2. ASA [Concomitant]
     Active Substance: ASPIRIN
     Dosage: UNK, TID
  3. PROLIA [Suspect]
     Active Substance: DENOSUMAB
     Indication: OSTEOPOROSIS
     Dosage: 60 UNK, Q6MO
     Route: 058
     Dates: start: 20130618
  4. CLONAZEPAM. [Concomitant]
     Active Substance: CLONAZEPAM
     Dosage: 0.25, QD
  5. LYRICA [Concomitant]
     Active Substance: PREGABALIN
     Dosage: 150, BID
  6. PROLIA [Suspect]
     Active Substance: DENOSUMAB
     Dosage: UNK
     Route: 058
  7. SENNOKOTT [Concomitant]

REACTIONS (5)
  - Fall [Not Recovered/Not Resolved]
  - Pleural effusion [Unknown]
  - Atelectasis [Unknown]
  - Rib fracture [Not Recovered/Not Resolved]
  - Haemothorax [Unknown]

NARRATIVE: CASE EVENT DATE: 20170318
